FAERS Safety Report 5484399-3 (Version None)
Quarter: 2007Q4

REPORT INFORMATION
  Report Type: 
  Country: None (occurrence: None)
  Receive Date: 20071012
  Receipt Date: 20071002
  Transmission Date: 20080405
  Serious: Yes (Hospitalization)
  Sender: FDA-Public Use
  Company Number: BE-ABBOTT-07P-013-0419370-00

PATIENT
  Sex: Male

DRUGS (4)
  1. KALETRA [Suspect]
     Indication: HIV INFECTION
     Dates: start: 20070315
  2. ABACAVIR SULFATE W/LAMIVUDINE [Concomitant]
     Indication: HIV INFECTION
     Dates: start: 20070315
  3. BACTRIM DS [Concomitant]
     Indication: DRUG USE FOR UNKNOWN INDICATION
  4. VALGANCICLOVIR HCL [Concomitant]
     Indication: PROPHYLAXIS
     Dates: end: 20070501

REACTIONS (2)
  - CHORIORETINITIS [None]
  - CYTOMEGALOVIRUS CHORIORETINITIS [None]
